FAERS Safety Report 8877534 (Version 1)
Quarter: 2012Q4

REPORT INFORMATION
  Report Type: 
  Country: FR (occurrence: FR)
  Receive Date: 20121024
  Receipt Date: 20121024
  Transmission Date: 20130627
  Serious: Yes (Hospitalization, Disabling, Other)
  Sender: FDA-Public Use
  Company Number: FR-PFIZER INC-2012263811

PATIENT
  Age: 89 Year
  Sex: Female

DRUGS (4)
  1. CORDARONE [Suspect]
     Indication: ATRIAL FIBRILLATION
     Dosage: 200 mg, daily
     Route: 048
     Dates: end: 20120724
  2. KARDEGIC [Concomitant]
     Indication: HYPERTENSION
     Dosage: UNK
  3. LOXEN [Concomitant]
     Indication: HYPERTENSION
     Dosage: UNK
  4. PARACETAMOL [Concomitant]
     Dosage: UNK

REACTIONS (6)
  - Pulmonary fibrosis [Not Recovered/Not Resolved]
  - General physical health deterioration [Unknown]
  - Decreased appetite [Unknown]
  - Diarrhoea [Unknown]
  - Fall [Unknown]
  - Contusion [Unknown]
